FAERS Safety Report 7364669-4 (Version None)
Quarter: 2011Q1

REPORT INFORMATION
  Report Type: 
  Country: None (occurrence: None)
  Receive Date: 20110321
  Receipt Date: 20110221
  Transmission Date: 20110831
  Serious: No
  Sender: FDA-Public Use
  Company Number: US-BAYER-2011-017268

PATIENT
  Age: 3 Year
  Sex: Male

DRUGS (1)
  1. ALEVE (CAPLET) [Suspect]
     Dosage: 1 DF IN TOTAL
     Route: 048
     Dates: start: 20110221, end: 20110221

REACTIONS (1)
  - NO ADVERSE EVENT [None]
